FAERS Safety Report 9450794 (Version 1)
Quarter: 2013Q3

REPORT INFORMATION
  Report Type: Spontaneous
  Country: US (occurrence: US)
  Receive Date: 20130809
  Receipt Date: 20130809
  Transmission Date: 20140515
  Serious: No
  Sender: FDA-Public Use
  Company Number: US-AMGEN-USASP2013050128

PATIENT
  Age: 75 Year
  Sex: Male

DRUGS (3)
  1. NEUPOGEN [Suspect]
     Indication: PROPHYLAXIS
     Dosage: 480 MUG, ON DAYS 1, 2 AND 3 AFTER CHEMO
     Route: 065
  2. CHEMOTHERAPEUTICS [Concomitant]
     Indication: BLADDER CANCER
     Dosage: UNK
  3. CHEMOTHERAPEUTICS [Concomitant]
     Indication: METASTASES TO LYMPH NODES

REACTIONS (4)
  - Local swelling [Unknown]
  - Discomfort [Recovered/Resolved]
  - Pain [Unknown]
  - Rash erythematous [Unknown]
